FAERS Safety Report 6537721-0 (Version None)
Quarter: 2009Q4

REPORT INFORMATION
  Report Type: 
  Country: None (occurrence: None)
  Receive Date: 20091229
  Receipt Date: 20091015
  Transmission Date: 20100525
  Serious: No
  Sender: FDA-Public Use
  Company Number: 1000009510

PATIENT
  Age: 59 Year
  Sex: Female

DRUGS (6)
  1. BYSTOLIC [Suspect]
     Indication: HYPERTENSION
     Dosage: 10 MG (10 MG, 1IN 1 D),ORAL
     Route: 048
     Dates: start: 20080801
  2. VYTORIN [Concomitant]
  3. CYMBALTA [Concomitant]
  4. NEXIUM [Concomitant]
  5. CALCIUM/VITAMIN D [Concomitant]
  6. MULTI-VITAMINS [Concomitant]

REACTIONS (1)
  - HYPERHIDROSIS [None]
